FAERS Safety Report 17856690 (Version 1)
Quarter: 2020Q2

REPORT INFORMATION
  Report Type: Spontaneous
  Country: US (occurrence: US)
  Receive Date: 20200603
  Receipt Date: 20200603
  Transmission Date: 20200714
  Serious: Yes (Hospitalization, Other)
  Sender: FDA-Public Use
  Company Number: US-ASTRAZENECA-2020SE70318

PATIENT
  Age: 686 Month
  Sex: Female
  Weight: 86.2 kg

DRUGS (24)
  1. FASENRA [Suspect]
     Active Substance: BENRALIZUMAB
     Indication: ASTHMA PROPHYLAXIS
     Route: 058
  2. FASENRA [Suspect]
     Active Substance: BENRALIZUMAB
     Indication: ASTHMA PROPHYLAXIS
     Route: 058
     Dates: start: 20200411
  3. XANAX [Concomitant]
     Active Substance: ALPRAZOLAM
     Dosage: 0.5MG AS REQUIRED
     Route: 048
     Dates: start: 2018
  4. BREO ELLIPTA [Concomitant]
     Active Substance: FLUTICASONE FUROATE\VILANTEROL TRIFENATATE
     Indication: ASTHMA
     Route: 055
     Dates: start: 202002
  5. PREMIZONE [Concomitant]
     Indication: ESSENTIAL TREMOR
     Dosage: USED TO TAKE HALF OF PREMIZONE TABLET NOW TAKES A FULL TAB 3.5 TO 4 YEARS FOR A YEAR AND A HALF
     Route: 048
  6. FASENRA [Suspect]
     Active Substance: BENRALIZUMAB
     Indication: ASTHMA PROPHYLAXIS
     Route: 058
  7. MEDROL PREDNISONE [Concomitant]
     Indication: CARDIAC DISORDER
     Dosage: 4 MG FOR 6 DAYS
     Route: 048
  8. VITAMIN D3 [Concomitant]
     Active Substance: CHOLECALCIFEROL
     Indication: SARCOIDOSIS
  9. INCRUZ [Concomitant]
     Indication: ASTHMA
     Route: 055
     Dates: start: 202002
  10. PROTONIX [Concomitant]
     Active Substance: PANTOPRAZOLE SODIUM
     Indication: GASTROOESOPHAGEAL REFLUX DISEASE
     Dosage: 40.0MG UNKNOWN
     Route: 048
     Dates: start: 2019
  11. TUMERIC [Concomitant]
     Active Substance: HERBALS\TURMERIC
     Indication: ARTHROPATHY
     Route: 048
     Dates: start: 2015
  12. MONTELUKAST SOD [Concomitant]
     Active Substance: MONTELUKAST SODIUM
     Indication: ASTHMA
     Dosage: 10.0MG UNKNOWN
     Route: 048
  13. FLONASE [Concomitant]
     Active Substance: FLUTICASONE PROPIONATE
     Indication: HYPERSENSITIVITY
     Dosage: 50 UG 2 SQUIRTS IN EACH NOSTRIL
     Route: 045
     Dates: start: 202002
  14. PREMIZONE [Concomitant]
     Indication: ESSENTIAL TREMOR
     Route: 048
  15. MAG PACK [Concomitant]
  16. LEVELALBUTERIL TARTRATE [Concomitant]
     Dosage: 40.0UG EVERY 4 - 6 HOURS
  17. MAGNESIUM [Concomitant]
     Active Substance: MAGNESIUM
     Indication: MIGRAINE
     Route: 048
  18. MULTI VITAMIN [Concomitant]
     Active Substance: VITAMINS
     Indication: ROUTINE HEALTH MAINTENANCE
     Route: 048
     Dates: start: 2019
  19. PREDNISONE. [Concomitant]
     Active Substance: PREDNISONE
     Dosage: 4 MG FOR 4 MONTHS
  20. AMOXICILLIN. [Concomitant]
     Active Substance: AMOXICILLIN
     Indication: TOOTH INFECTION
     Dosage: 875/175; EVERY 12 HOURS FOR 10 DAYS
     Route: 048
  21. EXCEDRIN [Concomitant]
     Active Substance: ACETAMINOPHEN\ASPIRIN\CAFFEINE
     Indication: MIGRAINE
     Dosage: 500 MG FOR 5 TRO 6 YEARS
     Route: 048
  22. CARDIZEM [Concomitant]
     Active Substance: DILTIAZEM HYDROCHLORIDE
     Route: 048
  23. ESTER C [Concomitant]
     Indication: COVID-19 PROPHYLAXIS
     Route: 048
     Dates: start: 20200509
  24. ZINC. [Concomitant]
     Active Substance: ZINC
     Route: 048
     Dates: start: 20200509

REACTIONS (19)
  - Osteomyelitis [Unknown]
  - Throat tightness [Unknown]
  - Injection site bruising [Not Recovered/Not Resolved]
  - Asthma [Not Recovered/Not Resolved]
  - Pain [Unknown]
  - Coronavirus infection [Unknown]
  - Migraine [Not Recovered/Not Resolved]
  - Enlarged uvula [Unknown]
  - Oral herpes [Unknown]
  - Tooth infection [Unknown]
  - Immune system disorder [Unknown]
  - Vomiting [Unknown]
  - Nausea [Unknown]
  - Stress [Unknown]
  - Malaise [Unknown]
  - Headache [Unknown]
  - Lymphadenitis [Unknown]
  - Sarcoidosis [Unknown]
  - Uvulitis [Unknown]

NARRATIVE: CASE EVENT DATE: 202001
